FAERS Safety Report 9906695 (Version 3)
Quarter: 2014Q2

REPORT INFORMATION
  Report Type: Spontaneous
  Country: IT (occurrence: IT)
  Receive Date: 20140218
  Receipt Date: 20140523
  Transmission Date: 20141212
  Serious: Yes (Hospitalization)
  Sender: FDA-Public Use
  Company Number: IT-PFIZER INC-2014044236

PATIENT
  Age: 57 Year
  Sex: Male

DRUGS (9)
  1. SOMATROPIN [Suspect]
     Indication: GONADOTROPHIN DEFICIENCY
     Dosage: 0.9 MG, WEEKLY
     Route: 058
     Dates: start: 20030301, end: 20140127
  2. TESTOSTERONE ENANTATE [Suspect]
     Indication: SECONDARY HYPOGONADISM
     Dosage: 250 MG, CYCLIC (21 DAYS)
     Route: 030
     Dates: start: 20030101, end: 20140127
  3. CORTONE [Concomitant]
     Indication: ADRENAL INSUFFICIENCY
     Dosage: ? + ? + ? OF 25MG TABLET/DAY
     Route: 048
  4. CARDIRENE [Concomitant]
     Dosage: 75 MG, DAILY
  5. KEPPRA [Concomitant]
     Dosage: 2750 MG, (500 +500 + 1750 MG)/DAY)
  6. EUTIROX [Concomitant]
     Dosage: 125 UG, DAILY
     Route: 048
  7. MINIRIN [Concomitant]
     Indication: DIABETES INSIPIDUS
     Dosage: 360 UG (1 +1 +1 TABLET)/DAY
  8. DIBASE [Concomitant]
     Dosage: 300000 IU (1 VIAL)/ 4 MONTHS
     Route: 048
  9. CITALOPRAM [Concomitant]
     Dosage: 5 GTT, DAILY

REACTIONS (3)
  - Prostate cancer [Unknown]
  - Adrenocortical insufficiency acute [Unknown]
  - Tonsillitis [Unknown]
